FAERS Safety Report 8540966-1 (Version None)
Quarter: 2012Q3

REPORT INFORMATION
  Report Type: 
  Country: None (occurrence: None)
  Receive Date: 20120726
  Receipt Date: 20110808
  Transmission Date: 20120928
  Serious: No
  Sender: FDA-Public Use
  Company Number: US-ASTRAZENECA-2011SE47615

PATIENT
  Age: 63 Year
  Sex: Female
  Weight: 81.6 kg

DRUGS (5)
  1. SEROQUEL XR [Suspect]
     Indication: BIPOLAR DISORDER
     Route: 048
     Dates: start: 20050101
  2. ULTRAM [Concomitant]
  3. FOSAMAX [Concomitant]
  4. ZOLOFT [Concomitant]
  5. PHENERGAN HCL [Concomitant]

REACTIONS (7)
  - PARAESTHESIA [None]
  - INSOMNIA [None]
  - NAUSEA [None]
  - HYPERHIDROSIS [None]
  - WITHDRAWAL SYNDROME [None]
  - DRUG DOSE OMISSION [None]
  - CRYING [None]
